FAERS Safety Report 18401053 (Version 1)
Quarter: 2020Q4

REPORT INFORMATION
  Report Type: Spontaneous
  Country: US (occurrence: US)
  Receive Date: 20201019
  Receipt Date: 20201019
  Transmission Date: 20210114
  Serious: No
  Sender: FDA-Public Use
  Company Number: US-SA-2020SA285087

PATIENT

DRUGS (1)
  1. LEFLUNOMIDE WINTHROP [Suspect]
     Active Substance: LEFLUNOMIDE
     Indication: PSORIATIC ARTHROPATHY
     Dosage: 20 MG, QD, DRUG STRUCTURE DOSAGE : 20MG DRUG INTERVAL DOSAGE : QD
     Route: 065

REACTIONS (7)
  - Sneezing [Unknown]
  - Oropharyngeal pain [Unknown]
  - Diarrhoea [Unknown]
  - Asthenia [Unknown]
  - Influenza like illness [Unknown]
  - Nasal congestion [Unknown]
  - Headache [Unknown]
